FAERS Safety Report 5335024-3 (Version None)
Quarter: 2007Q2

REPORT INFORMATION
  Report Type: 
  Country: None (occurrence: None)
  Receive Date: 20070525
  Receipt Date: 20070516
  Transmission Date: 20071010
  Serious: Yes (Hospitalization)
  Sender: FDA-Public Use
  Company Number: IN-SANOFI-SYNTHELABO-A01200705349

PATIENT
  Sex: Male
  Weight: 78 kg

DRUGS (1)
  1. ZOLPIDEM TARTRATE [Suspect]
     Dosage: 12.5 MG
     Route: 048
     Dates: start: 20070510

REACTIONS (6)
  - CONFUSIONAL STATE [None]
  - COORDINATION ABNORMAL [None]
  - DISCOMFORT [None]
  - DYSARTHRIA [None]
  - FALL [None]
  - SWELLING FACE [None]
